FAERS Safety Report 23778414 (Version 2)
Quarter: 2024Q2

REPORT INFORMATION
  Report Type: Spontaneous
  Country: HR (occurrence: HR)
  Receive Date: 20240424
  Receipt Date: 20240430
  Transmission Date: 20240715
  Serious: Yes (Other)
  Sender: FDA-Public Use
  Company Number: None

PATIENT
  Age: 51 Year
  Sex: Male

DRUGS (6)
  1. ZOLPIDEM TARTRATE [Suspect]
     Active Substance: ZOLPIDEM TARTRATE
     Dosage: GRADUALLY INCREASING THE DOSE TO 500 MG PER DAY
     Route: 045
     Dates: start: 2018
  2. ZOLPIDEM TARTRATE [Suspect]
     Active Substance: ZOLPIDEM TARTRATE
     Dosage: 30 MG
     Route: 048
     Dates: start: 2015
  3. ZOLPIDEM TARTRATE [Suspect]
     Active Substance: ZOLPIDEM TARTRATE
     Dosage: 300 MG
     Route: 045
     Dates: start: 202303
  4. ZOLPIDEM TARTRATE [Suspect]
     Active Substance: ZOLPIDEM TARTRATE
     Dosage: 150 MG
     Route: 045
     Dates: start: 202304
  5. ZOLPIDEM TARTRATE [Suspect]
     Active Substance: ZOLPIDEM TARTRATE
     Dosage: 80 MG
     Route: 045
     Dates: start: 202305
  6. ZOLPIDEM TARTRATE [Suspect]
     Active Substance: ZOLPIDEM TARTRATE
     Dosage: 500 MG, QD
     Route: 045
     Dates: start: 2020, end: 2022

REACTIONS (4)
  - Euphoric mood [Unknown]
  - Drug dependence [Unknown]
  - Intentional product misuse [Unknown]
  - Incorrect route of product administration [Unknown]
